FAERS Safety Report 15859734 (Version 1)
Quarter: 2019Q1

REPORT INFORMATION
  Report Type: Spontaneous
  Country: FR (occurrence: FR)
  Receive Date: 20190123
  Receipt Date: 20190123
  Transmission Date: 20190417
  Serious: Yes (Other)
  Sender: FDA-Public Use
  Company Number: FR-009507513-1901FRA006451

PATIENT
  Age: 48 Year
  Sex: Male

DRUGS (2)
  1. NOXAFIL [Suspect]
     Active Substance: POSACONAZOLE
     Indication: FUNGAL INFECTION
     Dosage: 2.5 MILLILITER, QD
     Route: 048
     Dates: start: 20181017, end: 20181019
  2. MODIGRAF [Interacting]
     Active Substance: TACROLIMUS
     Dosage: 0.4 (UNKNOWN UNIT) IN THE MORNING +0.2 (UNKNOWN UNIT) IN THE EVENING, QD
     Route: 048
     Dates: start: 20181017

REACTIONS (2)
  - Product administration error [Recovered/Resolved]
  - Immunosuppressant drug level decreased [Recovered/Resolved]

NARRATIVE: CASE EVENT DATE: 20181017
